FAERS Safety Report 8274810-7 (Version None)
Quarter: 2012Q2

REPORT INFORMATION
  Report Type: 
  Country: None (occurrence: None)
  Receive Date: 20120411
  Receipt Date: 20120409
  Transmission Date: 20120825
  Serious: Yes (Other)
  Sender: FDA-Public Use
  Company Number: US-JNJFOC-20120404181

PATIENT
  Sex: Male

DRUGS (1)
  1. NEOSPORIN [Suspect]
     Indication: OPEN WOUND
     Dosage: FOR OVER THREE WEEKS
     Route: 061

REACTIONS (1)
  - HYPOAESTHESIA [None]
